FAERS Safety Report 10017736 (Version 1)
Quarter: 2014Q1

REPORT INFORMATION
  Report Type: Spontaneous
  Country: US (occurrence: US)
  Receive Date: 20140318
  Receipt Date: 20140318
  Transmission Date: 20141002
  Serious: No
  Sender: FDA-Public Use
  Company Number: US-BRISTOL-MYERS SQUIBB COMPANY-18733295

PATIENT
  Age: 63 Year
  Sex: Male
  Weight: 69.76 kg

DRUGS (3)
  1. ERBITUX [Suspect]
     Indication: ADENOCARCINOMA OF COLON
     Dosage: LAST ERBITUX DOSE  14MAR2013
     Dates: start: 201206
  2. IRINOTECAN [Suspect]
     Dosage: 2 WEEKS IN A ROW AND THEN HAS A 1 WEEK BREAK
  3. MAGNESIUM [Concomitant]

REACTIONS (2)
  - Hypomagnesaemia [Unknown]
  - Diarrhoea [Unknown]
